FAERS Safety Report 14693488 (Version 1)
Quarter: 2018Q1

REPORT INFORMATION
  Report Type: Report from Study
  Country: US (occurrence: US)
  Receive Date: 20180329
  Receipt Date: 20180329
  Transmission Date: 20180509
  Serious: Yes (Hospitalization)
  Sender: FDA-Public Use
  Company Number: US-JNJFOC-20180328986

PATIENT
  Age: 69 Year
  Sex: Male

DRUGS (16)
  1. IMBRUVICA [Suspect]
     Active Substance: IBRUTINIB
     Indication: CHRONIC LYMPHOCYTIC LEUKAEMIA
     Route: 048
     Dates: start: 20180312
  2. IMBRUVICA [Suspect]
     Active Substance: IBRUTINIB
     Indication: CHRONIC LYMPHOCYTIC LEUKAEMIA
     Dosage: START PERIOD: 1516 DAYS
     Route: 048
     Dates: start: 20170322
  3. IMBRUVICA [Suspect]
     Active Substance: IBRUTINIB
     Indication: CHRONIC LYMPHOCYTIC LEUKAEMIA
     Route: 048
     Dates: start: 20140116, end: 20180307
  4. ACYCLOVIR. [Concomitant]
     Active Substance: ACYCLOVIR
  5. MULTIVITAMINS [Concomitant]
     Active Substance: VITAMINS
  6. ALLOPURINOL. [Concomitant]
     Active Substance: ALLOPURINOL
  7. IMMUNOGLOBULIN HUMAN NORMAL [Concomitant]
     Active Substance: HUMAN IMMUNOGLOBULIN G
     Dosage: MONTHLY
  8. NORCO [Concomitant]
     Active Substance: ACETAMINOPHEN\HYDROCODONE BITARTRATE
  9. PRAVASTATIN. [Concomitant]
     Active Substance: PRAVASTATIN
  10. SYNTHROID [Concomitant]
     Active Substance: LEVOTHYROXINE SODIUM
  11. LIDOCAINE. [Concomitant]
     Active Substance: LIDOCAINE
  12. COMBIVENT [Concomitant]
     Active Substance: ALBUTEROL SULFATE\IPRATROPIUM BROMIDE
  13. PREDNISONE. [Concomitant]
     Active Substance: PREDNISONE
  14. NYSTATIN. [Concomitant]
     Active Substance: NYSTATIN
  15. FOLIC ACID. [Concomitant]
     Active Substance: FOLIC ACID
  16. CALTRATE [Concomitant]
     Active Substance: CALCIUM CARBONATE

REACTIONS (7)
  - Gait disturbance [Recovering/Resolving]
  - Dehydration [Recovering/Resolving]
  - Fall [Recovering/Resolving]
  - Platelet count decreased [Recovering/Resolving]
  - Pyrexia [Unknown]
  - Heart rate decreased [Recovering/Resolving]
  - Haemoglobin decreased [Recovering/Resolving]

NARRATIVE: CASE EVENT DATE: 20180311
